FAERS Safety Report 4886864-6 (Version None)
Quarter: 2006Q1

REPORT INFORMATION
  Report Type: 
  Country: None (occurrence: None)
  Receive Date: 20060119
  Receipt Date: 20060111
  Transmission Date: 20060701
  Serious: Yes (Life-Threatening, Hospitalization)
  Sender: FDA-Public Use
  Company Number: 200510592BYL

PATIENT
  Age: 64 Year
  Sex: Male
  Weight: 49.5 kg

DRUGS (5)
  1. ASPIRIN [Suspect]
     Indication: CAROTID ARTERY STENOSIS
     Dosage: 100 MG, TOTAL DAILY, ORAL
     Route: 048
     Dates: start: 20050825, end: 20051015
  2. TICLOPIDINE HCL [Suspect]
     Indication: CAROTID ARTERY STENOSIS
     Dosage: 200 MG, TOTAL DAILY, ORAL
     Route: 048
     Dates: start: 20050825, end: 20051015
  3. ISOSORBIDE MONONITRATE [Suspect]
     Indication: ANGINA PECTORIS
     Dosage: 40 MG, TOTAL DAILY, ORAL
     Route: 048
     Dates: start: 20050825, end: 20051015
  4. SELBEX [Concomitant]
  5. ADALAT [Concomitant]

REACTIONS (12)
  - ACUTE RESPIRATORY DISTRESS SYNDROME [None]
  - AGRANULOCYTOSIS [None]
  - BLOOD PRESSURE SYSTOLIC [None]
  - CHEST PAIN [None]
  - CONDITION AGGRAVATED [None]
  - HEPATIC FUNCTION ABNORMAL [None]
  - INTERSTITIAL LUNG DISEASE [None]
  - JAUNDICE [None]
  - LYMPHOCYTE STIMULATION TEST POSITIVE [None]
  - PNEUMONIA [None]
  - SEPSIS [None]
  - STAPHYLOCOCCAL INFECTION [None]
